FAERS Safety Report 4934785-2 (Version None)
Quarter: 2006Q1

REPORT INFORMATION
  Report Type: 
  Country: None (occurrence: None)
  Receive Date: 20060307
  Receipt Date: 20051107
  Transmission Date: 20060701
  Serious: Yes (Hospitalization)
  Sender: FDA-Public Use
  Company Number: US-MERCK-0511USA01335

PATIENT
  Age: 58 Year
  Sex: Male
  Weight: 82 kg

DRUGS (19)
  1. VIOXX [Suspect]
     Indication: SPONDYLITIS
     Route: 048
     Dates: start: 20010101, end: 20010501
  2. VIOXX [Suspect]
     Indication: BACK PAIN
     Route: 048
     Dates: start: 20010101, end: 20010501
  3. NAPROXEN [Concomitant]
     Indication: PAIN
     Route: 065
     Dates: start: 20010701
  4. ROXICET [Concomitant]
     Indication: PAIN
     Route: 065
     Dates: start: 20010501, end: 20010501
  5. IBUPROFEN [Concomitant]
     Indication: PAIN
     Route: 065
     Dates: start: 20010501, end: 20020101
  6. ATENOLOL [Concomitant]
     Indication: HYPERTENSION
     Route: 065
     Dates: start: 19991001, end: 20020801
  7. ZOCOR [Concomitant]
     Indication: BLOOD CHOLESTEROL
     Route: 065
     Dates: start: 19991101
  8. TRIMOX [Concomitant]
     Route: 065
  9. FLOMAX [Concomitant]
     Indication: BENIGN PROSTATIC HYPERPLASIA
     Route: 065
  10. WELLBUTRIN [Concomitant]
     Indication: ANXIETY
     Route: 065
  11. CYCLOBENZAPRINE HYDROCHLORIDE [Concomitant]
     Indication: MULTIPLE SCLEROSIS
     Route: 065
  12. AMBIEN [Concomitant]
     Indication: SLEEP DISORDER
     Route: 065
  13. PAXIL [Concomitant]
     Indication: ANXIETY
     Route: 065
  14. XANAX [Concomitant]
     Indication: ANXIETY
     Route: 065
  15. [THERAPY UNSPECIFIED] [Concomitant]
     Route: 065
  16. GABITRIL [Concomitant]
     Indication: ANXIETY
     Route: 065
  17. BUSPAR [Concomitant]
     Indication: ANXIETY
     Route: 065
  18. ZOLOFT [Concomitant]
     Indication: ANXIETY
     Route: 065
  19. DITROPAN [Concomitant]
     Indication: BENIGN PROSTATIC HYPERPLASIA
     Route: 065

REACTIONS (5)
  - ARTERIOSCLEROSIS [None]
  - CARDIAC DISORDER [None]
  - MYOCARDIAL INFARCTION [None]
  - OVERDOSE [None]
  - PROSTATIC DISORDER [None]
